FAERS Safety Report 8129586-0 (Version None)
Quarter: 2012Q1

REPORT INFORMATION
  Report Type: 
  Country: None (occurrence: None)
  Receive Date: 20120210
  Receipt Date: 20120207
  Transmission Date: 20120608
  Serious: Yes (Congenital Anomaly)
  Sender: FDA-Public Use
  Company Number: US-GLAXOSMITHKLINE-A0963959A

PATIENT
  Sex: Male

DRUGS (6)
  1. PAXIL [Suspect]
     Indication: ANXIETY
     Route: 064
  2. FLONASE [Concomitant]
     Route: 064
  3. VALTREX [Concomitant]
     Route: 064
  4. KLONOPIN [Concomitant]
     Indication: ANXIETY
     Route: 064
  5. MULTI-VITAMINS [Concomitant]
     Route: 064
  6. ELAVIL [Concomitant]
     Route: 064

REACTIONS (5)
  - PATENT DUCTUS ARTERIOSUS [None]
  - FOETAL EXPOSURE DURING PREGNANCY [None]
  - PLAGIOCEPHALY [None]
  - CARDIAC MURMUR [None]
  - LAEVOCARDIA [None]
